FAERS Safety Report 4945264-0 (Version None)
Quarter: 2006Q1

REPORT INFORMATION
  Report Type: 
  Country: None (occurrence: None)
  Receive Date: 20060316
  Receipt Date: 20060126
  Transmission Date: 20060701
  Serious: Yes (Other)
  Sender: FDA-Public Use
  Company Number: US-BRISTOL-MYERS SQUIBB COMPANY-13263355

PATIENT
  Age: 88 Year
  Sex: Female

DRUGS (2)
  1. COUMADIN [Suspect]
  2. KEPPRA [Concomitant]

REACTIONS (4)
  - CEREBROVASCULAR ACCIDENT [None]
  - CONTUSION [None]
  - MEMORY IMPAIRMENT [None]
  - NEOPLASM [None]
